FAERS Safety Report 21522107 (Version 1)
Quarter: 2022Q4

REPORT INFORMATION
  Report Type: Spontaneous
  Country: US (occurrence: None)
  Receive Date: 20221027
  Receipt Date: 20221027
  Transmission Date: 20230113
  Serious: No
  Sender: FDA-Public Use
  Company Number: None

PATIENT
  Age: 77 Year
  Sex: Male

DRUGS (1)
  1. EMPAGLIFLOZIN [Suspect]
     Active Substance: EMPAGLIFLOZIN
     Dosage: HALF TAB EVERY DAY PO?
     Route: 048
     Dates: start: 20220318, end: 20220610

REACTIONS (1)
  - Flushing [None]

NARRATIVE: CASE EVENT DATE: 20220610
